FAERS Safety Report 7588200-3 (Version None)
Quarter: 2011Q3

REPORT INFORMATION
  Report Type: 
  Country: None (occurrence: None)
  Receive Date: 20110705
  Receipt Date: 20110613
  Transmission Date: 20111222
  Serious: Yes (Hospitalization, Other)
  Sender: FDA-Public Use
  Company Number: US-BAYER-201014953NA

PATIENT
  Age: 30 Year
  Sex: Female
  Weight: 81.633 kg

DRUGS (9)
  1. YASMIN [Suspect]
     Indication: ACNE
  2. PRINIVIL [Concomitant]
     Indication: BLOOD PRESSURE INCREASED
     Dosage: UNK
     Dates: start: 20010101
  3. PATANOL [Concomitant]
     Indication: MULTIPLE ALLERGIES
     Dosage: UNK
     Dates: start: 20030101, end: 20080101
  4. ORTHO EVRA [Concomitant]
     Dosage: UNK
     Dates: start: 20040701
  5. ZYRTEC [Concomitant]
     Indication: MULTIPLE ALLERGIES
     Dosage: UNK
     Dates: start: 20030101, end: 20080101
  6. NSAID'S [Concomitant]
  7. YASMIN [Suspect]
     Indication: ENDOMETRIOSIS
     Route: 048
     Dates: start: 20021101, end: 20040729
  8. ALLEGRA [Concomitant]
     Indication: MULTIPLE ALLERGIES
     Dosage: UNK
     Dates: start: 20030101, end: 20080101
  9. NASONEX [Concomitant]
     Indication: MULTIPLE ALLERGIES
     Dosage: UNK

REACTIONS (2)
  - GALLBLADDER CHOLESTEROLOSIS [None]
  - CHOLECYSTITIS CHRONIC [None]
